FAERS Safety Report 8169951 (Version 3)
Quarter: 2013Q4

REPORT INFORMATION
  Report Type: Spontaneous
  Country: GB (occurrence: GB)
  Receive Date: 20110926
  Receipt Date: 20131028
  Transmission Date: 20140711
  Serious: Yes (Other)
  Sender: FDA-Public Use
  Company Number: GB-ACCORD-010650

PATIENT
  Age: 76 Year
  Sex: Female
  Weight: 67 kg

DRUGS (17)
  1. SIMVASTATIN [Suspect]
     Indication: PRODUCT USED FOR UNKNOWN INDICATION
     Dates: start: 20110901
  2. TRIMETHOPRIM [Concomitant]
     Dates: start: 20110608, end: 20110615
  3. AQUEOUS CREAM [Concomitant]
     Dates: start: 20110519, end: 20110616
  4. GABAPENTIN [Concomitant]
     Dates: start: 20110519
  5. HYDROXOCOBALAMIN [Concomitant]
     Dates: start: 20110622, end: 20110817
  6. DOCUSATE SODIUM [Concomitant]
     Dates: start: 20110519
  7. CLOPIDOGREL [Concomitant]
     Dates: start: 20110617, end: 20110717
  8. LOFEPRAMINE [Concomitant]
     Dates: start: 20110418, end: 20110717
  9. CALCICHEW D3 [Concomitant]
     Dates: start: 20110519
  10. MEPTAZINOL [Concomitant]
     Dates: start: 20110815
  11. BECLOMETASONE [Concomitant]
     Dates: start: 20110614
  12. RAMIPRIL [Concomitant]
     Dates: start: 20110519
  13. HYPROMELLOSE [Concomitant]
     Dates: start: 20110519
  14. OMEPRAZOLE [Concomitant]
     Dates: start: 20110519
  15. SLOZEM [Concomitant]
     Dates: start: 20110519
  16. PARACETAMOL [Concomitant]
     Dates: start: 20110614, end: 20110626
  17. ZOPICLONE [Concomitant]
     Dates: start: 20110519

REACTIONS (1)
  - Contusion [Recovering/Resolving]
